FAERS Safety Report 24995271 (Version 1)
Quarter: 2025Q1

REPORT INFORMATION
  Report Type: Spontaneous
  Country: US (occurrence: None)
  Receive Date: 20250221
  Receipt Date: 20250221
  Transmission Date: 20250409
  Serious: Yes (Life-Threatening, Hospitalization, Other)
  Sender: FDA-CTU
  Company Number: None

PATIENT
  Age: 42 Year
  Sex: Female

DRUGS (1)
  1. PARAGARD T 380A [Suspect]
     Active Substance: COPPER

REACTIONS (5)
  - Uterine perforation [None]
  - Ovarian cyst [None]
  - Infection [None]
  - Woman of non-childbearing potential [None]
  - Complication associated with device [None]

NARRATIVE: CASE EVENT DATE: 20220415
